FAERS Safety Report 6711972-4 (Version None)
Quarter: 2010Q2

REPORT INFORMATION
  Report Type: 
  Country: None (occurrence: None)
  Receive Date: 20100505
  Receipt Date: 20100422
  Transmission Date: 20101027
  Serious: Yes (Death, Hospitalization)
  Sender: FDA-Public Use
  Company Number: JP-AMGEN-US402285

PATIENT
  Age: 56 Year
  Sex: Male
  Weight: 50 kg

DRUGS (15)
  1. ENBREL [Suspect]
     Indication: RHEUMATOID ARTHRITIS
     Route: 058
     Dates: start: 20091001, end: 20100307
  2. CALCIUM CARBONATE [Concomitant]
     Dosage: UNKNOWN
     Route: 048
  3. RENAGEL [Concomitant]
     Indication: RENAL FAILURE CHRONIC
     Route: 048
     Dates: end: 20100320
  4. MUCOSTA [Concomitant]
     Route: 048
     Dates: end: 20100320
  5. PLETAL [Concomitant]
     Indication: ARTERIOSCLEROSIS OBLITERANS
     Route: 048
     Dates: end: 20100320
  6. PREDNISOLONE [Concomitant]
     Indication: RHEUMATOID ARTHRITIS
     Route: 065
     Dates: start: 20081001
  7. MENESIT [Concomitant]
     Indication: PARKINSON'S DISEASE
     Route: 048
     Dates: end: 20100320
  8. LENDORMIN [Concomitant]
     Indication: INSOMNIA
     Route: 048
     Dates: end: 20100320
  9. ASPIRIN [Concomitant]
     Indication: ARTERIOSCLEROSIS OBLITERANS
     Route: 048
     Dates: end: 20100320
  10. CANDESARTAN CILEXETIL [Concomitant]
     Indication: HYPERTENSION
     Route: 048
     Dates: end: 20100320
  11. BACTRIM [Concomitant]
     Route: 048
     Dates: start: 20100317, end: 20100320
  12. ALESION [Concomitant]
     Indication: RHINITIS ALLERGIC
     Route: 048
     Dates: end: 20100320
  13. PARIET [Concomitant]
     Route: 048
     Dates: end: 20100320
  14. BIO THREE [Concomitant]
     Route: 048
     Dates: end: 20100320
  15. SWINE FLU VACCINE, MONOVALENT [Concomitant]
     Route: 058

REACTIONS (11)
  - ANAPHYLACTOID REACTION [None]
  - DIARRHOEA [None]
  - FACE OEDEMA [None]
  - INFLUENZA [None]
  - NASOPHARYNGITIS [None]
  - PANCYTOPENIA [None]
  - PNEUMONIA CHLAMYDIAL [None]
  - SEPSIS [None]
  - SHOCK HAEMORRHAGIC [None]
  - STOMATITIS [None]
  - VIRAL INFECTION [None]
